FAERS Safety Report 9414921 (Version 1)
Quarter: 2013Q3

REPORT INFORMATION
  Report Type: Spontaneous
  Country: US (occurrence: US)
  Receive Date: 20130723
  Receipt Date: 20130723
  Transmission Date: 20140515
  Serious: Yes (Hospitalization)
  Sender: FDA-Public Use
  Company Number: US-BAYER-2013-088806

PATIENT
  Age: 16 Year
  Sex: Female
  Weight: 103.86 kg

DRUGS (14)
  1. YAZ [Suspect]
  2. GIANVI [Suspect]
  3. TAMIFLU [Concomitant]
     Dosage: 75 MG, UNK
     Dates: start: 20130124
  4. AMOXICILINA + CLAVULANICO [Concomitant]
     Dosage: 875/125
     Dates: start: 20130128
  5. MONTELUKAST [Concomitant]
     Dosage: UNK
     Dates: start: 20130228
  6. CLARITIN [Concomitant]
  7. Z-PAK [Concomitant]
  8. MELOXICAM [Concomitant]
  9. PROAIR HFA [Concomitant]
  10. AMOXICILLIN [Concomitant]
  11. SINGULAIR [Concomitant]
  12. ALBUTEROL [Concomitant]
  13. AZITHROMYCIN [Concomitant]
  14. LEVOQUIN [Concomitant]
     Dosage: 750 MG, UNK
     Route: 048

REACTIONS (1)
  - Pulmonary embolism [None]
